FAERS Safety Report 19025675 (Version 1)
Quarter: 2021Q1

REPORT INFORMATION
  Report Type: Spontaneous
  Country: ES (occurrence: ES)
  Receive Date: 20210318
  Receipt Date: 20210318
  Transmission Date: 20210420
  Serious: Yes (Disabling, Other)
  Sender: FDA-Public Use
  Company Number: ES-SUN PHARMACEUTICAL INDUSTRIES LTD-2021RR-286299

PATIENT
  Age: 70 Year
  Sex: Male

DRUGS (4)
  1. SERTRALINE [Suspect]
     Active Substance: SERTRALINE HYDROCHLORIDE
     Indication: PRIMARY FAMILIAL BRAIN CALCIFICATION
     Dosage: THERAPEUTIC DOSES
  2. VENLAFAXINE [Suspect]
     Active Substance: VENLAFAXINE HYDROCHLORIDE
     Indication: PRIMARY FAMILIAL BRAIN CALCIFICATION
     Dosage: THERAPEUTIC DOSES
     Route: 065
  3. RISPERIDONE. [Suspect]
     Active Substance: RISPERIDONE
     Indication: PRIMARY FAMILIAL BRAIN CALCIFICATION
     Dosage: LOW DOSES
     Route: 065
  4. MIRTAZAPINE. [Suspect]
     Active Substance: MIRTAZAPINE
     Indication: PRIMARY FAMILIAL BRAIN CALCIFICATION
     Dosage: 30 MILLIGRAM, DAILY
     Route: 065

REACTIONS (11)
  - Hypertensive crisis [Unknown]
  - Gait inability [Unknown]
  - Nervous system disorder [Unknown]
  - Incontinence [Unknown]
  - Stupor [Unknown]
  - Hyperthermia [Unknown]
  - Disease progression [Unknown]
  - Hyperhidrosis [Unknown]
  - Delirium [Unknown]
  - Bradykinesia [Unknown]
  - Dyskinesia [Unknown]
